FAERS Safety Report 10197372 (Version 2)
Quarter: 2014Q2

REPORT INFORMATION
  Report Type: Spontaneous
  Country: US (occurrence: US)
  Receive Date: 20140527
  Receipt Date: 20140527
  Transmission Date: 20141212
  Serious: No
  Sender: FDA-Public Use
  Company Number: US-BAXTER-2014BAX024555

PATIENT
  Age: 53 Year
  Sex: Male

DRUGS (2)
  1. DIANEAL LOW CALCIUM [Suspect]
     Indication: PERITONEAL DIALYSIS
     Route: 033
     Dates: start: 20140430
  2. DIANEAL LOW CALCIUM [Suspect]
     Route: 033
     Dates: start: 201405

REACTIONS (1)
  - Renal pain [Recovered/Resolved]
